FAERS Safety Report 10772221 (Version 2)
Quarter: 2015Q1

REPORT INFORMATION
  Report Type: Spontaneous
  Country: FR (occurrence: FR)
  Receive Date: 20150206
  Receipt Date: 20150327
  Transmission Date: 20150721
  Serious: Yes (Hospitalization, Other)
  Sender: FDA-Public Use
  Company Number: FR-ASTRAZENECA-2015SE10585

PATIENT
  Age: 10311 Day
  Sex: Male

DRUGS (12)
  1. ARACYTINE [Suspect]
     Active Substance: CYTARABINE
     Route: 037
     Dates: start: 20140912, end: 20140912
  2. DEXAMETHASONE. [Concomitant]
     Active Substance: DEXAMETHASONE
  3. METHOTREXATE [Interacting]
     Active Substance: METHOTREXATE
     Indication: ACUTE LYMPHOCYTIC LEUKAEMIA
     Route: 041
     Dates: start: 20140918, end: 20140918
  4. VINCRISTINE SULFATE. [Suspect]
     Active Substance: VINCRISTINE SULFATE
     Route: 041
     Dates: start: 20140918, end: 20140918
  5. SPECIAFOLDINE [Concomitant]
     Active Substance: FOLIC ACID
  6. INEXIUM [Suspect]
     Active Substance: ESOMEPRAZOLE
     Route: 048
     Dates: start: 20140911, end: 20140921
  7. METHOTREXATE [Interacting]
     Active Substance: METHOTREXATE
     Indication: ACUTE LYMPHOCYTIC LEUKAEMIA
     Route: 037
     Dates: start: 20140910, end: 20140919
  8. CYCLOPHOSPHAMIDE. [Suspect]
     Active Substance: CYCLOPHOSPHAMIDE
     Indication: ACUTE LYMPHOCYTIC LEUKAEMIA
     Route: 041
     Dates: start: 20140919, end: 20140919
  9. BACTRIM [Suspect]
     Active Substance: SULFAMETHOXAZOLE\TRIMETHOPRIM
     Route: 048
     Dates: start: 20140911, end: 20140921
  10. ZELITREX [Concomitant]
     Active Substance: VALACYCLOVIR HYDROCHLORIDE
  11. FASTURTEC [Concomitant]
     Active Substance: RASBURICASE
  12. SOLU-MEDROL [Concomitant]
     Active Substance: METHYLPREDNISOLONE SODIUM SUCCINATE
     Dosage: 120 MG FOR 7 DAYS
     Dates: start: 20140911, end: 20140918

REACTIONS (8)
  - Renal failure [Recovered/Resolved]
  - Drug interaction [Unknown]
  - Renal tubular necrosis [Recovered/Resolved]
  - Vertigo [Unknown]
  - Fall [Unknown]
  - Vomiting [Unknown]
  - Overdose [Unknown]
  - Hypotension [Unknown]

NARRATIVE: CASE EVENT DATE: 20140918
